FAERS Safety Report 13363345 (Version 1)
Quarter: 2017Q1

REPORT INFORMATION
  Report Type: Spontaneous
  Country: US (occurrence: US)
  Receive Date: 20170323
  Receipt Date: 20170323
  Transmission Date: 20170429
  Serious: Yes (Other)
  Sender: FDA-Public Use
  Company Number: US-TAKEDA-2017TUS005470

PATIENT
  Sex: Female

DRUGS (2)
  1. VITAMIN D [Concomitant]
     Active Substance: CHOLECALCIFEROL
     Indication: VITAMIN D DEFICIENCY
     Dosage: 50000 IU, 2/WEEK
  2. ENTYVIO [Suspect]
     Active Substance: VEDOLIZUMAB
     Indication: CROHN^S DISEASE
     Dosage: UNK
     Route: 065

REACTIONS (8)
  - Lupus-like syndrome [Unknown]
  - Obstruction [Unknown]
  - Nausea [Unknown]
  - Fatigue [Unknown]
  - Autoimmune disorder [Unknown]
  - Headache [Unknown]
  - Condition aggravated [Unknown]
  - Vitamin D deficiency [Unknown]
